FAERS Safety Report 16712230 (Version 2)
Quarter: 2019Q3

REPORT INFORMATION
  Report Type: Spontaneous
  Country: US (occurrence: US)
  Receive Date: 20190816
  Receipt Date: 20190910
  Transmission Date: 20191004
  Serious: Yes (Other)
  Sender: FDA-Public Use
  Company Number: US-GILEAD-2019-0423870

PATIENT
  Age: 55 Year
  Sex: Male
  Weight: 93.88 kg

DRUGS (7)
  1. GLIPIZIDE. [Concomitant]
     Active Substance: GLIPIZIDE
     Dosage: UNK
     Route: 048
     Dates: start: 2018
  2. GENVOYA [Suspect]
     Active Substance: COBICISTAT\ELVITEGRAVIR\EMTRICITABINE\TENOFOVIR ALAFENAMIDE FUMARATE
     Indication: HIV INFECTION
     Dosage: UNK
     Route: 065
     Dates: start: 201803
  3. LEVEMIR [Concomitant]
     Active Substance: INSULIN DETEMIR
     Dosage: UNK
     Route: 058
     Dates: start: 2018
  4. ATORVASTATIN [Concomitant]
     Active Substance: ATORVASTATIN
     Dosage: UNK
     Route: 048
     Dates: start: 2018
  5. SULFAMETHOXAZOLE [Concomitant]
     Active Substance: SULFAMETHOXAZOLE
     Dosage: UNK
     Route: 048
     Dates: start: 2018
  6. LOSARTAN. [Concomitant]
     Active Substance: LOSARTAN
     Dosage: UNK
     Route: 048
     Dates: start: 2018
  7. METFORMIN [Concomitant]
     Active Substance: METFORMIN HYDROCHLORIDE
     Dosage: UNK
     Route: 048
     Dates: start: 2018

REACTIONS (2)
  - Drug ineffective [Not Recovered/Not Resolved]
  - Multiple-drug resistance [Not Recovered/Not Resolved]

NARRATIVE: CASE EVENT DATE: 20190718
